FAERS Safety Report 20136353 (Version 1)
Quarter: 2021Q4

REPORT INFORMATION
  Report Type: Spontaneous
  Country: BR (occurrence: BR)
  Receive Date: 20211201
  Receipt Date: 20211201
  Transmission Date: 20220303
  Serious: Yes (Hospitalization, Other)
  Sender: FDA-Public Use
  Company Number: BR-PFIZER INC-202101616404

PATIENT
  Age: 84 Year
  Sex: Female

DRUGS (6)
  1. ATORVASTATIN CALCIUM [Suspect]
     Active Substance: ATORVASTATIN CALCIUM
  2. AMLODIPINE BESYLATE\ATENOLOL [Concomitant]
     Active Substance: AMLODIPINE BESYLATE\ATENOLOL
  3. VALSARTAN [Concomitant]
     Active Substance: VALSARTAN
  4. CLOPIDOGREL [Concomitant]
     Active Substance: CLOPIDOGREL BISULFATE
  5. NITRENDIPINO [Concomitant]
  6. OLODATEROL HYDROCHLORIDE\TIOTROPIUM BROMIDE MONOHYDRATE [Concomitant]
     Active Substance: OLODATEROL HYDROCHLORIDE\TIOTROPIUM BROMIDE MONOHYDRATE

REACTIONS (2)
  - Arterial disorder [Unknown]
  - Tracheitis [Unknown]

NARRATIVE: CASE EVENT DATE: 20210901
